FAERS Safety Report 9714427 (Version 1)
Quarter: 2013Q4

REPORT INFORMATION
  Report Type: Spontaneous
  Country: US (occurrence: US)
  Receive Date: 20131126
  Receipt Date: 20131126
  Transmission Date: 20140711
  Serious: No
  Sender: FDA-Public Use
  Company Number: US-BIOGENIDEC-2013BI075846

PATIENT
  Age: 56 Year
  Sex: Female
  Weight: 153 kg

DRUGS (23)
  1. TECFIDERA [Suspect]
     Indication: MULTIPLE SCLEROSIS
     Route: 048
     Dates: start: 20130708, end: 20130715
  2. TECFIDERA [Suspect]
     Indication: MULTIPLE SCLEROSIS
     Route: 048
     Dates: start: 20130716
  3. POTASSIUM [Concomitant]
     Route: 048
  4. CYMBALTA [Concomitant]
     Route: 048
  5. ZEBETA [Concomitant]
     Route: 048
  6. NEURONTIN [Concomitant]
     Route: 048
  7. ZANAFLEX [Concomitant]
     Route: 048
  8. TRAMADOL HCL ER [Concomitant]
     Route: 048
  9. FLEXERIL [Concomitant]
     Route: 048
  10. VITAMIN D3 [Concomitant]
     Route: 048
  11. VITAMIN B-12 [Concomitant]
     Route: 048
  12. ASPIRIN LOW  EC [Concomitant]
     Route: 048
  13. AMLODIPINE [Concomitant]
     Route: 048
  14. FISH OIL [Concomitant]
     Route: 048
  15. ALEVE [Concomitant]
     Route: 048
  16. CASCARA SAGR [Concomitant]
     Route: 048
  17. ZYRTEC [Concomitant]
     Route: 048
  18. PEPTO BISMOL [Concomitant]
  19. PRILOSEC [Concomitant]
  20. TUMS [Concomitant]
  21. OXYCODONE [Concomitant]
  22. PHENERGAN [Concomitant]
  23. ZYRTEC [Concomitant]

REACTIONS (6)
  - Burning sensation [Unknown]
  - Hot flush [Recovered/Resolved]
  - Nausea [Unknown]
  - Flushing [Unknown]
  - Erythema [Unknown]
  - Vomiting [Unknown]
